FAERS Safety Report 24055159 (Version 2)
Quarter: 2024Q3

REPORT INFORMATION
  Report Type: Spontaneous
  Country: AR (occurrence: AR)
  Receive Date: 20240705
  Receipt Date: 20240828
  Transmission Date: 20241017
  Serious: Yes (Death, Hospitalization)
  Sender: BOEHRINGER INGELHEIM
  Company Number: AR-BoehringerIngelheim-2024-BI-036992

PATIENT
  Age: 72 Year
  Sex: Male

DRUGS (2)
  1. OFEV [Suspect]
     Active Substance: NINTEDANIB
     Indication: Idiopathic pulmonary fibrosis
     Dates: start: 201911
  2. OFEV [Suspect]
     Active Substance: NINTEDANIB
     Dates: start: 2020

REACTIONS (5)
  - Cardiac failure [Fatal]
  - Acute pulmonary oedema [Fatal]
  - Osteoarthritis [Not Recovered/Not Resolved]
  - Diarrhoea [Recovered/Resolved]
  - Hepatitis viral [Recovered/Resolved]

NARRATIVE: CASE EVENT DATE: 20191201
